FAERS Safety Report 7060413-9 (Version None)
Quarter: 2010Q4

REPORT INFORMATION
  Report Type: 
  Country: None (occurrence: None)
  Receive Date: 20101025
  Receipt Date: 20101018
  Transmission Date: 20110411
  Serious: Yes (Other)
  Sender: FDA-Public Use
  Company Number: US-WYE-H18217410

PATIENT
  Sex: Female

DRUGS (2)
  1. PREMARIN [Suspect]
     Dosage: UNKNOWN
     Route: 065
  2. CELEBREX [Concomitant]
     Dosage: UNKNOWN
     Route: 065

REACTIONS (8)
  - BLINDNESS [None]
  - EAR PAIN [None]
  - EYE PAIN [None]
  - MEMORY IMPAIRMENT [None]
  - SWELLING FACE [None]
  - TOOTH DISORDER [None]
  - ULCER [None]
  - VISION BLURRED [None]
